FAERS Safety Report 4898955-4 (Version None)
Quarter: 2006Q1

REPORT INFORMATION
  Report Type: 
  Country: None (occurrence: None)
  Receive Date: 20060202
  Receipt Date: 20051005
  Transmission Date: 20060701
  Serious: Yes (Hospitalization, Disabling)
  Sender: FDA-Public Use
  Company Number: US-MERCK-0510USA06378

PATIENT
  Age: 48 Year
  Sex: Female
  Weight: 71 kg

DRUGS (4)
  1. VIOXX [Suspect]
     Indication: PAIN IN EXTREMITY
     Route: 048
     Dates: start: 20021001, end: 20030101
  2. VIOXX [Suspect]
     Indication: FIBROMYALGIA
     Route: 048
     Dates: start: 20021001, end: 20030101
  3. SKELAXIN [Concomitant]
     Route: 065
     Dates: start: 20021011
  4. ULTRACET [Concomitant]
     Route: 065
     Dates: start: 20021011

REACTIONS (13)
  - CARDIAC DISORDER [None]
  - CARDIAC FAILURE [None]
  - CARDIAC VALVE DISEASE [None]
  - CHEST PAIN [None]
  - CORONARY ARTERY DISEASE [None]
  - FIBROMYALGIA [None]
  - HEPATITIS C [None]
  - HYPERTENSION [None]
  - ISCHAEMIC CARDIOMYOPATHY [None]
  - MYOCARDIAL INFARCTION [None]
  - MYOCARDIAL ISCHAEMIA [None]
  - OSTEOARTHRITIS [None]
  - ROAD TRAFFIC ACCIDENT [None]
